FAERS Safety Report 10066247 (Version 1)
Quarter: 2014Q2

REPORT INFORMATION
  Report Type: Not Available
  Country: FR (occurrence: FR)
  Receive Date: 20140408
  Receipt Date: 20140408
  Transmission Date: 20141212
  Serious: Yes (Life-Threatening, Hospitalization, Other)
  Sender: FDA-Public Use
  Company Number: FR-ASTELLAS-2014US003558

PATIENT
  Age: 55 Year
  Sex: Female

DRUGS (17)
  1. AMBISOME [Suspect]
     Indication: PRODUCT USED FOR UNKNOWN INDICATION
     Dosage: UNK
     Route: 042
     Dates: start: 20140122, end: 20140213
  2. AMBISOME [Suspect]
     Dosage: UNK
     Route: 042
     Dates: start: 20140305, end: 20140311
  3. VANCOMYCINE MYLAN [Suspect]
     Indication: OSTEITIS
     Dosage: UNK
     Route: 042
     Dates: start: 20140120, end: 20140226
  4. VANCOMYCINE MYLAN [Suspect]
     Indication: SEPTIC SHOCK
     Dosage: UNK
     Route: 042
     Dates: start: 20140227, end: 20140228
  5. VANCOMYCINE MYLAN [Suspect]
     Indication: OSTEITIS
     Dosage: UNK
     Route: 048
     Dates: start: 20140226
  6. VANCOMYCINE MYLAN [Suspect]
     Indication: SEPTIC SHOCK
  7. CEFOTAXIME                         /00497602/ [Suspect]
     Indication: OSTEITIS
     Dosage: UNK
     Route: 042
     Dates: start: 20140124, end: 20140226
  8. THIOCOLCHICOSIDE EG [Suspect]
     Indication: PRODUCT USED FOR UNKNOWN INDICATION
     Dosage: UNK
     Route: 048
     Dates: start: 20140204, end: 20140220
  9. LAROXYL [Suspect]
     Indication: PRODUCT USED FOR UNKNOWN INDICATION
     Dosage: UNK
     Route: 048
     Dates: start: 20140204, end: 20140226
  10. OXYCONTIN [Suspect]
     Indication: PRODUCT USED FOR UNKNOWN INDICATION
     Dosage: UNK
     Route: 048
     Dates: start: 20140205, end: 20140228
  11. CEFEPIME [Concomitant]
     Indication: PRODUCT USED FOR UNKNOWN INDICATION
     Dosage: UNK
     Route: 065
     Dates: start: 20140120, end: 20140124
  12. FLUCONAZOLE [Concomitant]
     Indication: PRODUCT USED FOR UNKNOWN INDICATION
     Dosage: UNK
     Route: 065
     Dates: start: 20140218, end: 20140305
  13. FLAGYL                             /00012501/ [Concomitant]
     Indication: PRODUCT USED FOR UNKNOWN INDICATION
     Dosage: UNK
     Route: 065
     Dates: start: 20140219, end: 20140226
  14. ATARAX                             /00058402/ [Concomitant]
     Indication: PRODUCT USED FOR UNKNOWN INDICATION
     Dosage: UNK
     Route: 065
  15. INEXIUM                            /01479302/ [Concomitant]
     Indication: PRODUCT USED FOR UNKNOWN INDICATION
     Dosage: UNK
     Route: 065
     Dates: start: 20140217
  16. SPASFON                            /00765801/ [Concomitant]
     Indication: PRODUCT USED FOR UNKNOWN INDICATION
     Dosage: UNK
     Route: 065
     Dates: start: 20140220
  17. ZOPHREN                            /00955301/ [Concomitant]
     Indication: PRODUCT USED FOR UNKNOWN INDICATION
     Dosage: UNK
     Route: 065
     Dates: start: 20140220

REACTIONS (9)
  - Drug reaction with eosinophilia and systemic symptoms [Recovering/Resolving]
  - Dermatitis exfoliative [Recovering/Resolving]
  - Lymphadenopathy [Unknown]
  - Hepatic failure [Recovering/Resolving]
  - Hepatitis cholestatic [Recovering/Resolving]
  - Interstitial lung disease [Recovering/Resolving]
  - Pyrexia [Recovering/Resolving]
  - Rash maculo-papular [Recovering/Resolving]
  - Renal failure acute [Recovering/Resolving]
